FAERS Safety Report 5332036-0 (Version None)
Quarter: 2007Q2

REPORT INFORMATION
  Report Type: 
  Country: None (occurrence: None)
  Receive Date: 20070518
  Receipt Date: 20070504
  Transmission Date: 20071010
  Serious: Yes (Death)
  Sender: FDA-Public Use
  Company Number: 2006S1011530

PATIENT
  Age: 29 Year
  Sex: Female

DRUGS (1)
  1. FENTANYL TRANSDERMAL SYSTEM [Suspect]
     Dosage: 50 UG/HR; TRANSDERMAL
     Route: 062

REACTIONS (2)
  - DRUG ABUSER [None]
  - OVERDOSE [None]
